FAERS Safety Report 6554613-1 (Version None)
Quarter: 2010Q1

REPORT INFORMATION
  Report Type: 
  Country: None (occurrence: None)
  Receive Date: 20100125
  Receipt Date: 20100113
  Transmission Date: 20100710
  Serious: Yes (Death, Hospitalization)
  Sender: FDA-Public Use
  Company Number: 2009AC000327

PATIENT
  Age: 93 Year
  Sex: Female

DRUGS (18)
  1. DIGOXIN [Suspect]
     Indication: HYPERTENSION
     Dosage: .125 MG; PO
     Route: 048
     Dates: start: 20040830
  2. VASOTEC [Concomitant]
  3. NORVASC [Concomitant]
  4. CEPHALEXIN [Concomitant]
  5. SULFAMETHOXAZOLE [Concomitant]
  6. HYDROCODONE [Concomitant]
  7. MECLIZINE [Concomitant]
  8. LISINOPRIL [Concomitant]
  9. DETROL [Concomitant]
  10. CIPROFLOXACIN [Concomitant]
  11. FUROSEMIDE [Concomitant]
  12. LEVOTHROID [Concomitant]
  13. LIPITOR [Concomitant]
  14. PROTONIX [Concomitant]
  15. PENTOXIFYLLINE [Concomitant]
  16. ISOSORBIDE [Concomitant]
  17. MECLIZINE [Concomitant]
  18. CLORAZEPATE DIPOTASSIUM [Concomitant]

REACTIONS (21)
  - AGITATION [None]
  - APNOEA [None]
  - ATELECTASIS [None]
  - BRADYCARDIA [None]
  - CHEST DISCOMFORT [None]
  - CONFUSIONAL STATE [None]
  - DEHYDRATION [None]
  - DISORIENTATION [None]
  - DYSPNOEA EXERTIONAL [None]
  - FATIGUE [None]
  - HYPERCAPNIA [None]
  - HYPOTENSION [None]
  - OEDEMA PERIPHERAL [None]
  - PAIN [None]
  - PLEURAL FIBROSIS [None]
  - PNEUMONIA [None]
  - PNEUMONIA ASPIRATION [None]
  - RESPIRATORY FAILURE [None]
  - THERAPEUTIC AGENT TOXICITY [None]
  - UNRESPONSIVE TO STIMULI [None]
  - WHEEZING [None]
